FAERS Safety Report 18528404 (Version 2)
Quarter: 2020Q4

REPORT INFORMATION
  Report Type: Spontaneous
  Country: US (occurrence: US)
  Receive Date: 20201120
  Receipt Date: 20201123
  Transmission Date: 20210114
  Serious: Yes (Other)
  Sender: FDA-Public Use
  Company Number: US-TEVA-2020-US-1850246

PATIENT
  Age: 35 Year
  Sex: Female

DRUGS (1)
  1. PREDNISONE TEVA [Suspect]
     Active Substance: PREDNISONE
     Indication: HYPERSENSITIVITY
     Dosage: TWO TABLETS IN THE MORNING
     Route: 065
     Dates: start: 202011

REACTIONS (4)
  - Choking [Recovered/Resolved]
  - Product substitution issue [Unknown]
  - Anxiety [Not Recovered/Not Resolved]
  - Product size issue [Unknown]
